FAERS Safety Report 8308718-5 (Version None)
Quarter: 2012Q1

REPORT INFORMATION
  Report Type: 
  Country: None (occurrence: None)
  Receive Date: 20120327
  Receipt Date: 20110215
  Transmission Date: 20120608
  Serious: Yes (Hospitalization)
  Sender: FDA-Public Use
  Company Number: PHHY2011US12619

PATIENT
  Age: 37 Year
  Sex: Male

DRUGS (1)
  1. GLEEVEC [Suspect]
     Dosage: ORAL, ORAL
     Route: 048
     Dates: start: 20020101, end: 20060101

REACTIONS (2)
  - THROMBOSIS [None]
  - EOSINOPHIL COUNT INCREASED [None]
